FAERS Safety Report 21927880 (Version 1)
Quarter: 2023Q1

REPORT INFORMATION
  Report Type: Spontaneous
  Country: None (occurrence: US)
  Receive Date: 20230130
  Receipt Date: 20230130
  Transmission Date: 20230417
  Serious: Yes (Other)
  Sender: FDA-Public Use
  Company Number: US-Pine Pharmaceuticals, LLC-2137253

PATIENT
  Age: 60 Year
  Sex: Female

DRUGS (1)
  1. EPINEPHRINE\LIDOCAINE [Suspect]
     Active Substance: EPINEPHRINE\LIDOCAINE
     Route: 031
     Dates: start: 20221208, end: 20230108

REACTIONS (1)
  - Corneal oedema [Recovering/Resolving]
